FAERS Safety Report 8829311 (Version 1)
Quarter: 2012Q4

REPORT INFORMATION
  Report Type: Spontaneous
  Country: US (occurrence: None)
  Receive Date: 20121005
  Receipt Date: 20121005
  Transmission Date: 20130627
  Serious: Yes (Death, Life-Threatening, Hospitalization, Disabling, Other)
  Sender: FDA-Public Use
  Company Number: None

PATIENT
  Age: 86 Year
  Sex: Female
  Weight: 63.5 kg

DRUGS (6)
  1. PRADAXA [Suspect]
     Route: 048
     Dates: start: 20100802, end: 20120302
  2. METOPROLOL [Concomitant]
  3. FUROSEMIDE [Concomitant]
  4. CRESTOR [Concomitant]
  5. PRADAXA [Concomitant]
  6. EYE DROP - TRAVATANE [Concomitant]

REACTIONS (1)
  - Cerebrovascular accident [None]
